FAERS Safety Report 15607085 (Version 1)
Quarter: 2018Q4

REPORT INFORMATION
  Report Type: Spontaneous
  Country: US (occurrence: US)
  Receive Date: 20181112
  Receipt Date: 20181112
  Transmission Date: 20190205
  Serious: Yes (Disabling, Other)
  Sender: FDA-Public Use
  Company Number: None

PATIENT
  Age: 65 Year
  Sex: Female
  Weight: 92.7 kg

DRUGS (6)
  1. DULOXENTINE [Concomitant]
  2. TOPIRAMATE. [Concomitant]
     Active Substance: TOPIRAMATE
  3. PRAMIPEXOLE. [Concomitant]
     Active Substance: PRAMIPEXOLE
  4. COPAXONE [Suspect]
     Active Substance: GLATIRAMER ACETATE
     Indication: MULTIPLE SCLEROSIS
     Dosage: ?          QUANTITY:1 INJECTION(S);OTHER FREQUENCY:3 X A WEEK;OTHER ROUTE:INJECTION INTO A DIFF. PART OF BODY?
     Dates: start: 20160914, end: 20170130
  5. AMANTADINE. [Concomitant]
     Active Substance: AMANTADINE HYDROCHLORIDE
  6. RANITIDINE. [Concomitant]
     Active Substance: RANITIDINE

REACTIONS (19)
  - Dyspnoea [None]
  - Migraine [None]
  - Tremor [None]
  - Musculoskeletal pain [None]
  - Nausea [None]
  - Lethargy [None]
  - Dizziness [None]
  - Hyperhidrosis [None]
  - Device issue [None]
  - Back pain [None]
  - Vision blurred [None]
  - Gait disturbance [None]
  - Loss of personal independence in daily activities [None]
  - Chest pain [None]
  - Blood pressure increased [None]
  - Chills [None]
  - Loss of consciousness [None]
  - Hypoaesthesia [None]
  - Erythema [None]

NARRATIVE: CASE EVENT DATE: 20170118
